FAERS Safety Report 8170089-5 (Version None)
Quarter: 2012Q1

REPORT INFORMATION
  Report Type: 
  Country: None (occurrence: None)
  Receive Date: 20120228
  Receipt Date: 20120224
  Transmission Date: 20120608
  Serious: No
  Sender: FDA-Public Use
  Company Number: US-PFIZER INC-2012050032

PATIENT
  Sex: Female
  Weight: 68.027 kg

DRUGS (1)
  1. CELEBREX [Suspect]
     Indication: JUVENILE ARTHRITIS
     Dosage: 100MG THREE CAPSULES DAILY IN MORNING
     Dates: start: 20120223

REACTIONS (1)
  - PRURITUS [None]
